FAERS Safety Report 6562297-1 (Version None)
Quarter: 2010Q1

REPORT INFORMATION
  Report Type: 
  Country: None (occurrence: None)
  Receive Date: 20100130
  Receipt Date: 20091104
  Transmission Date: 20100710
  Serious: No
  Sender: FDA-Public Use
  Company Number: US-ABBOTT-09P-163-0606793-00

PATIENT
  Sex: Female

DRUGS (2)
  1. HUMIRA [Suspect]
     Indication: DRUG USE FOR UNKNOWN INDICATION
     Dates: start: 20050101
  2. HUMIRA [Suspect]
     Dosage: 80MG DOSE DAY 1
     Route: 058
     Dates: start: 20091101

REACTIONS (3)
  - DRUG INEFFECTIVE [None]
  - INJECTION SITE NODULE [None]
  - INJECTION SITE PAIN [None]
